FAERS Safety Report 9685117 (Version 1)
Quarter: 2013Q4

REPORT INFORMATION
  Report Type: Spontaneous
  Country: US (occurrence: US)
  Receive Date: 20131113
  Receipt Date: 20131113
  Transmission Date: 20140711
  Serious: No
  Sender: FDA-Public Use
  Company Number: US-B.I. PHARMACEUTICALS,INC./RIDGEFIELD-2013-BI-35629BP

PATIENT
  Age: 74 Year
  Sex: Male

DRUGS (6)
  1. PRADAXA [Suspect]
     Indication: ATRIAL FIBRILLATION
     Dosage: 300 MG
     Route: 048
     Dates: start: 201310
  2. LYRICA [Concomitant]
     Route: 048
  3. CRESTOR [Concomitant]
     Route: 048
  4. TRAMADOL [Concomitant]
     Route: 048
  5. TAMSULOSIN [Concomitant]
     Route: 048
  6. CARVEDILOL [Concomitant]
     Route: 048

REACTIONS (2)
  - Pain [Not Recovered/Not Resolved]
  - Nausea [Recovered/Resolved]
